FAERS Safety Report 18422064 (Version 1)
Quarter: 2020Q4

REPORT INFORMATION
  Report Type: Spontaneous
  Country: CN (occurrence: CN)
  Receive Date: 20201023
  Receipt Date: 20201023
  Transmission Date: 20210114
  Serious: Yes (Hospitalization, Other)
  Sender: FDA-Public Use
  Company Number: CN-PFIZER INC-2020409585

PATIENT
  Age: 54 Year
  Sex: Female
  Weight: 54 kg

DRUGS (24)
  1. GLUCOSE [Concomitant]
     Active Substance: DEXTROSE
     Indication: PULMONARY ARTERIAL HYPERTENSION
  2. CYTOSAR [Suspect]
     Active Substance: CYTARABINE
     Indication: HEART DISEASE CONGENITAL
  3. HOMOHARRINGTONINE [Suspect]
     Active Substance: OMACETAXINE MEPESUCCINATE
     Indication: PNEUMONIA
  4. HOMOHARRINGTONINE [Suspect]
     Active Substance: OMACETAXINE MEPESUCCINATE
     Indication: PULMONARY ARTERIAL HYPERTENSION
  5. SODIUM CHLORIDE. [Concomitant]
     Active Substance: SODIUM CHLORIDE
     Indication: CHEMOTHERAPY
  6. CYTOSAR [Suspect]
     Active Substance: CYTARABINE
     Indication: PULMONARY ARTERIAL HYPERTENSION
  7. HOMOHARRINGTONINE [Suspect]
     Active Substance: OMACETAXINE MEPESUCCINATE
     Indication: ACUTE MYELOID LEUKAEMIA
     Dosage: 4 MG, 1X/DAY
     Route: 041
     Dates: start: 20201001, end: 20201005
  8. HOMOHARRINGTONINE [Suspect]
     Active Substance: OMACETAXINE MEPESUCCINATE
     Indication: CHEMOTHERAPY
  9. SODIUM CHLORIDE. [Concomitant]
     Active Substance: SODIUM CHLORIDE
     Indication: ACUTE MYELOID LEUKAEMIA
     Dosage: 500 ML, 2X/DAY
     Route: 041
     Dates: start: 20201001, end: 20201005
  10. SODIUM CHLORIDE. [Concomitant]
     Active Substance: SODIUM CHLORIDE
     Indication: PULMONARY ARTERIAL HYPERTENSION
  11. GLUCOSE [Concomitant]
     Active Substance: DEXTROSE
     Indication: CHEMOTHERAPY
  12. GLUCOSE [Concomitant]
     Active Substance: DEXTROSE
     Indication: PNEUMONIA
  13. CYTOSAR [Suspect]
     Active Substance: CYTARABINE
     Indication: ACUTE MYELOID LEUKAEMIA
     Dosage: 2 G, 2X/DAY
     Route: 041
     Dates: start: 20201001, end: 20201005
  14. CYTOSAR [Suspect]
     Active Substance: CYTARABINE
     Indication: CHEMOTHERAPY
  15. SODIUM CHLORIDE. [Concomitant]
     Active Substance: SODIUM CHLORIDE
     Indication: TRICUSPID VALVE INCOMPETENCE
  16. GLUCOSE [Concomitant]
     Active Substance: DEXTROSE
     Indication: TRICUSPID VALVE INCOMPETENCE
  17. CYTOSAR [Suspect]
     Active Substance: CYTARABINE
     Indication: PNEUMONIA
  18. CYTOSAR [Suspect]
     Active Substance: CYTARABINE
     Indication: TRICUSPID VALVE INCOMPETENCE
  19. HOMOHARRINGTONINE [Suspect]
     Active Substance: OMACETAXINE MEPESUCCINATE
     Indication: HEART DISEASE CONGENITAL
  20. SODIUM CHLORIDE. [Concomitant]
     Active Substance: SODIUM CHLORIDE
     Indication: PNEUMONIA
  21. GLUCOSE [Concomitant]
     Active Substance: DEXTROSE
     Indication: HEART DISEASE CONGENITAL
  22. HOMOHARRINGTONINE [Suspect]
     Active Substance: OMACETAXINE MEPESUCCINATE
     Indication: TRICUSPID VALVE INCOMPETENCE
  23. SODIUM CHLORIDE. [Concomitant]
     Active Substance: SODIUM CHLORIDE
     Indication: HEART DISEASE CONGENITAL
  24. GLUCOSE [Concomitant]
     Active Substance: DEXTROSE
     Indication: ACUTE MYELOID LEUKAEMIA
     Dosage: 500 ML, 1X/DAY
     Route: 041
     Dates: start: 20201001, end: 20201005

REACTIONS (5)
  - Neutrophil count decreased [Recovering/Resolving]
  - Platelet count decreased [Recovering/Resolving]
  - Myelosuppression [Unknown]
  - White blood cell count decreased [Recovering/Resolving]
  - Haemoglobin decreased [Recovering/Resolving]

NARRATIVE: CASE EVENT DATE: 20201014
